FAERS Safety Report 11156067 (Version 1)
Quarter: 2015Q2

REPORT INFORMATION
  Report Type: Spontaneous
  Country: CN (occurrence: CN)
  Receive Date: 20150602
  Receipt Date: 20150602
  Transmission Date: 20150821
  Serious: Yes (Death)
  Sender: FDA-Public Use
  Company Number: CN-ROXANE LABORATORIES, INC.-2015-RO-00898RO

PATIENT
  Sex: Male

DRUGS (1)
  1. DEXAMETHASONE. [Suspect]
     Active Substance: DEXAMETHASONE
     Indication: HYDROCEPHALUS
     Route: 065

REACTIONS (1)
  - Aspergillus infection [Fatal]
